FAERS Safety Report 6273150-5 (Version None)
Quarter: 2009Q3

REPORT INFORMATION
  Report Type: 
  Country: None (occurrence: None)
  Receive Date: 20090715
  Receipt Date: 20090715
  Transmission Date: 20100115
  Serious: No
  Sender: FDA-Public Use
  Company Number: None

PATIENT
  Age: 46 Year
  Sex: Male
  Weight: 76.2043 kg

DRUGS (1)
  1. LAMOTRIGINE [Suspect]
     Indication: EPILEPSY
     Dosage: 2 150MG TABLETS 3 TIMES DAILY PO ALSO 1/2 TABLET AFTERNOON PO
     Route: 048
     Dates: start: 20080915

REACTIONS (2)
  - EPILEPSY [None]
  - PRODUCT SUBSTITUTION ISSUE [None]
